FAERS Safety Report 14745715 (Version 8)
Quarter: 2018Q3

REPORT INFORMATION
  Report Type: Spontaneous
  Country: DE (occurrence: DE)
  Receive Date: 20180411
  Receipt Date: 20180914
  Transmission Date: 20181010
  Serious: Yes (Congenital Anomaly, Other)
  Sender: FDA-Public Use
  Company Number: PHHY2018DE059069

PATIENT
  Sex: Male
  Weight: 2.9 kg

DRUGS (4)
  1. HYDROXYCHLOROQUINE [Suspect]
     Active Substance: HYDROXYCHLOROQUINE
     Indication: FOETAL EXPOSURE DURING PREGNANCY
     Dosage: GESTATIONAL WEEK OF EXPOSURE? 0?13
     Route: 064
  2. SULFASALAZINE. [Suspect]
     Active Substance: SULFASALAZINE
     Indication: FOETAL EXPOSURE DURING PREGNANCY
     Dosage: UNK (GESTATIONAL WEEK OF EXPOSURE? 0?17)
     Route: 064
  3. PARACETAMOL [Suspect]
     Active Substance: ACETAMINOPHEN
     Indication: FOETAL EXPOSURE DURING PREGNANCY
     Dosage: GESTATIONAL WEEK OF EXPOSURE? 17?21
     Route: 064
  4. DICLOFENAC [Suspect]
     Active Substance: DICLOFENAC
     Indication: FOETAL EXPOSURE DURING PREGNANCY
     Dosage: UNK (MATERNAL DOSE: 100 MG, PRN)
     Route: 064

REACTIONS (6)
  - Medium-chain acyl-coenzyme A dehydrogenase deficiency [Unknown]
  - Foetal exposure during pregnancy [Unknown]
  - Trisomy 8 [Unknown]
  - Fragile X syndrome [Unknown]
  - Cryopyrin associated periodic syndrome [Unknown]
  - Microcephaly [Unknown]
